FAERS Safety Report 6419360-5 (Version None)
Quarter: 2009Q4

REPORT INFORMATION
  Report Type: 
  Country: None (occurrence: None)
  Receive Date: 20091027
  Receipt Date: 20091014
  Transmission Date: 20100525
  Serious: Yes (Other)
  Sender: FDA-Public Use
  Company Number: 2009AL006677

PATIENT
  Age: 36 Year
  Sex: Female

DRUGS (3)
  1. BACLOFEN [Suspect]
  2. PREGABALIN [Concomitant]
  3. ZOPICLON [Concomitant]

REACTIONS (1)
  - SUICIDE ATTEMPT [None]
